FAERS Safety Report 5021805-2 (Version None)
Quarter: 2006Q2

REPORT INFORMATION
  Report Type: 
  Country: None (occurrence: None)
  Receive Date: 20060605
  Receipt Date: 20060519
  Transmission Date: 20061013
  Serious: Yes (Hospitalization)
  Sender: FDA-Public Use
  Company Number: US200605004475

PATIENT
  Age: 44 Year
  Sex: Female

DRUGS (2)
  1. ZYPREXA [Suspect]
     Indication: METABOLIC DISORDER
     Dosage: 10 MG, DAILY (1/D)
     Dates: start: 20000101
  2. PAXIL [Concomitant]

REACTIONS (7)
  - DYSPHONIA [None]
  - GASTRIC OPERATION [None]
  - OESOPHAGEAL OPERATION [None]
  - PNEUMONIA [None]
  - SELF MUTILATION [None]
  - SMALL INTESTINE OPERATION [None]
  - SUICIDAL IDEATION [None]
